FAERS Safety Report 7048319-2 (Version None)
Quarter: 2010Q4

REPORT INFORMATION
  Report Type: 
  Country: None (occurrence: None)
  Receive Date: 20101015
  Receipt Date: 20101007
  Transmission Date: 20110411
  Serious: Yes (Death, Other)
  Sender: FDA-Public Use
  Company Number: GB-WYE-G06800610

PATIENT
  Sex: Male

DRUGS (1)
  1. VENLAFAXINE HYDROCHLORIDE [Suspect]
     Dosage: UNKNOWN
     Route: 064

REACTIONS (5)
  - FOETAL MACROSOMIA [None]
  - FOETAL MALNUTRITION [None]
  - HYPOXIC-ISCHAEMIC ENCEPHALOPATHY [None]
  - INTRA-UTERINE DEATH [None]
  - NEONATAL ASPIRATION [None]
